FAERS Safety Report 12487236 (Version 2)
Quarter: 2016Q3

REPORT INFORMATION
  Report Type: Spontaneous
  Country: US (occurrence: US)
  Receive Date: 20160622
  Receipt Date: 20160901
  Transmission Date: 20161109
  Serious: Yes (Hospitalization)
  Sender: FDA-Public Use
  Company Number: US-RELYPSA-RLY2016001035

PATIENT
  Sex: Male

DRUGS (20)
  1. CLOPIDOGREL BISULFATE. [Concomitant]
     Active Substance: CLOPIDOGREL BISULFATE
  2. ATORVASTATIN CALCIUM. [Concomitant]
     Active Substance: ATORVASTATIN CALCIUM
  3. ISOSORBIDE MONONITRATE. [Concomitant]
     Active Substance: ISOSORBIDE MONONITRATE
  4. VITAMIN D                          /00107901/ [Concomitant]
     Active Substance: ERGOCALCIFEROL
  5. TRAMADOL HCL [Concomitant]
     Active Substance: TRAMADOL HYDROCHLORIDE
  6. VELTASSA [Suspect]
     Active Substance: PATIROMER
     Indication: HYPERKALAEMIA
     Dosage: 8.4 G, QD
     Route: 048
     Dates: start: 20160602
  7. LEVEMIR [Concomitant]
     Active Substance: INSULIN DETEMIR
  8. METHYLPREDNISOLONE. [Concomitant]
     Active Substance: METHYLPREDNISOLONE
  9. RANITIDINE HCL [Concomitant]
     Active Substance: RANITIDINE HYDROCHLORIDE
  10. ULORIC [Concomitant]
     Active Substance: FEBUXOSTAT
  11. METOPROLOL SUCCINATE. [Concomitant]
     Active Substance: METOPROLOL SUCCINATE
  12. ASPIRIN                            /00002701/ [Concomitant]
     Active Substance: ASPIRIN
  13. FLONASE                            /00908302/ [Concomitant]
     Active Substance: MOMETASONE FUROATE
  14. MULTIVITAMINS, PLAIN [Concomitant]
     Active Substance: VITAMINS
  15. CETIRIZINE HCL [Concomitant]
     Active Substance: CETIRIZINE HYDROCHLORIDE
  16. FERROUS SULFATE. [Concomitant]
     Active Substance: FERROUS SULFATE
  17. FOLIC ACID. [Concomitant]
     Active Substance: FOLIC ACID
  18. FUROSEMIDE. [Concomitant]
     Active Substance: FUROSEMIDE
  19. LISINOPRIL. [Concomitant]
     Active Substance: LISINOPRIL
  20. TRULICITY [Concomitant]
     Active Substance: DULAGLUTIDE

REACTIONS (3)
  - Abdominal pain upper [Unknown]
  - Blood potassium abnormal [Unknown]
  - Umbilical hernia [Unknown]

NARRATIVE: CASE EVENT DATE: 2016
